FAERS Safety Report 24072140 (Version 5)
Quarter: 2025Q3

REPORT INFORMATION
  Report Type: Report from Study
  Country: US (occurrence: US)
  Receive Date: 20240710
  Receipt Date: 20250807
  Transmission Date: 20251021
  Serious: Yes (Hospitalization, Other)
  Sender: EMD SERONO INC
  Company Number: US-Merck Healthcare KGaA-2024036258

PATIENT
  Age: 58 Year
  Sex: Female

DRUGS (5)
  1. MAVENCLAD [Suspect]
     Active Substance: CLADRIBINE
     Indication: Multiple sclerosis
     Dates: start: 20230401, end: 20230405
  2. MAVENCLAD [Suspect]
     Active Substance: CLADRIBINE
     Dates: start: 20230429, end: 20230503
  3. MAVENCLAD [Suspect]
     Active Substance: CLADRIBINE
  4. MAVENCLAD [Suspect]
     Active Substance: CLADRIBINE
     Dates: start: 20240612, end: 20240616
  5. VITAMIN B12 [Concomitant]
     Active Substance: CYANOCOBALAMIN
     Indication: Product used for unknown indication

REACTIONS (20)
  - White blood cell count decreased [Recovering/Resolving]
  - Haemoglobin decreased [Not Recovered/Not Resolved]
  - Platelet count decreased [Not Recovered/Not Resolved]
  - Loss of consciousness [Unknown]
  - Dizziness [Unknown]
  - Feeling abnormal [Unknown]
  - Asthenia [Unknown]
  - Blood pressure increased [Recovering/Resolving]
  - Heart rate abnormal [Unknown]
  - Dyspnoea [Unknown]
  - Fall [Unknown]
  - Joint injury [Recovering/Resolving]
  - Contusion [Not Recovered/Not Resolved]
  - Peripheral swelling [Unknown]
  - Rash [Recovered/Resolved]
  - Neck pain [Unknown]
  - Facial pain [Unknown]
  - Gait disturbance [Unknown]
  - Tremor [Unknown]
  - Amnesia [Unknown]

NARRATIVE: CASE EVENT DATE: 20240626
